FAERS Safety Report 25543504 (Version 1)
Quarter: 2025Q3

REPORT INFORMATION
  Report Type: Spontaneous
  Country: US (occurrence: None)
  Receive Date: 20250710
  Receipt Date: 20250710
  Transmission Date: 20251021
  Serious: No
  Sender: FDA-CTU
  Company Number: None

PATIENT
  Age: 17 Year
  Sex: Female
  Weight: 90.52 kg

DRUGS (4)
  1. XOLAIR [Suspect]
     Active Substance: OMALIZUMAB
     Indication: Urticaria
     Dosage: 300 MG EVERY 4 WEEKS SUBCUTANEOUS?
     Route: 058
     Dates: start: 20250505
  2. AMITRIPTYLINE [Concomitant]
     Active Substance: AMITRIPTYLINE
     Dates: start: 20250623
  3. Sumatriptan 25 mg [Concomitant]
     Dates: start: 20250605
  4. Junel  Fe 1.5/30 tablets [Concomitant]
     Dates: start: 20250418

REACTIONS (1)
  - Headache [None]

NARRATIVE: CASE EVENT DATE: 20250710
